FAERS Safety Report 7866803-6 (Version None)
Quarter: 2011Q4

REPORT INFORMATION
  Report Type: 
  Country: None (occurrence: None)
  Receive Date: 20111028
  Receipt Date: 20110824
  Transmission Date: 20120403
  Serious: No
  Sender: FDA-Public Use
  Company Number: US-GLAXOSMITHKLINE-A0942157A

PATIENT
  Age: 77 Year
  Sex: Female

DRUGS (5)
  1. SPIRIVA [Concomitant]
  2. LISINOPRIL [Concomitant]
  3. NIFICAL [Concomitant]
  4. ADVAIR DISKUS 100/50 [Suspect]
     Indication: PRODUCT USED FOR UNKNOWN INDICATION
     Dosage: 1PUFF TWICE PER DAY
     Route: 055
  5. XOPENEX [Concomitant]

REACTIONS (3)
  - PRODUCT QUALITY ISSUE [None]
  - DRUG INEFFECTIVE [None]
  - DYSPNOEA [None]
